FAERS Safety Report 24995976 (Version 3)
Quarter: 2025Q3

REPORT INFORMATION
  Report Type: Spontaneous
  Country: US (occurrence: US)
  Receive Date: 20250221
  Receipt Date: 20250820
  Transmission Date: 20251020
  Serious: No
  Sender: CATALYST PHARMA
  Company Number: US-CATALYST PHARMACEUTICALS-US-CATA-24-01418

PATIENT
  Sex: Male
  Weight: 48.5 kg

DRUGS (5)
  1. AGAMREE [Suspect]
     Active Substance: VAMOROLONE
     Indication: Duchenne muscular dystrophy
     Dosage: 7.3 ML ONCE A DAY
     Route: 048
     Dates: start: 202406
  2. AGAMREE [Suspect]
     Active Substance: VAMOROLONE
     Dosage: 7 ML ONCE A DAY
     Route: 048
     Dates: start: 20250311, end: 2025
  3. AGAMREE [Suspect]
     Active Substance: VAMOROLONE
     Dosage: 5 ML ONCE A DAY
     Route: 048
     Dates: start: 20250321, end: 2025
  4. AGAMREE [Suspect]
     Active Substance: VAMOROLONE
     Dosage: 4 ML ONCE A DAY
     Route: 048
     Dates: start: 20250609
  5. LISINOPRIL [Concomitant]
     Active Substance: LISINOPRIL
     Indication: Cardiovascular disorder
     Dosage: 5 MG ONCE A DAY
     Route: 065

REACTIONS (4)
  - Weight increased [Unknown]
  - Swelling face [Not Recovered/Not Resolved]
  - Increased appetite [Not Recovered/Not Resolved]
  - Drug ineffective [Unknown]

NARRATIVE: CASE EVENT DATE: 20240101
